FAERS Safety Report 5846754-9 (Version None)
Quarter: 2008Q3

REPORT INFORMATION
  Report Type: 
  Country: None (occurrence: None)
  Receive Date: 20080815
  Receipt Date: 20080811
  Transmission Date: 20090109
  Serious: Yes (Hospitalization)
  Sender: FDA-Public Use
  Company Number: FR-AVENTIS-200812983FR

PATIENT
  Age: 83 Year
  Sex: Male

DRUGS (9)
  1. HEMI-DAONIL [Suspect]
     Indication: DIABETES MELLITUS
     Route: 048
     Dates: end: 20080505
  2. ACUITEL                            /00810601/ [Suspect]
     Indication: HYPERTENSION
     Route: 048
  3. PRAZOSIN HCL [Concomitant]
  4. MONO-TILDIEM [Concomitant]
     Route: 048
  5. BUFLOMEDIL [Concomitant]
     Route: 048
  6. KARDEGIC                           /00002703/ [Concomitant]
  7. PLAVIX [Concomitant]
  8. AMLOR [Concomitant]
  9. PROPOFAN                           /00765201/ [Concomitant]
     Dosage: DOSE: 1 TO 6 TABLETS DAILY
     Route: 048

REACTIONS (3)
  - DRUG INTERACTION [None]
  - HYPOGLYCAEMIA [None]
  - MALAISE [None]
